FAERS Safety Report 7610458-2 (Version None)
Quarter: 2011Q3

REPORT INFORMATION
  Report Type: 
  Country: None (occurrence: None)
  Receive Date: 20110707
  Receipt Date: 20110623
  Transmission Date: 20111222
  Serious: Yes (Hospitalization)
  Sender: FDA-Public Use
  Company Number: 2011MA007999

PATIENT
  Age: 48 Year
  Sex: Female
  Weight: 21.5 kg

DRUGS (2)
  1. RANITIDINE [Concomitant]
  2. IBUPROFEN [Suspect]
     Indication: TONSILLITIS
     Dosage: 800 MG;

REACTIONS (21)
  - HEADACHE [None]
  - MUSCULOSKELETAL STIFFNESS [None]
  - BURNING SENSATION [None]
  - DEAFNESS BILATERAL [None]
  - TINNITUS [None]
  - DEAFNESS NEUROSENSORY [None]
  - INNER EAR DISORDER [None]
  - NAUSEA [None]
  - BLOOD BRAIN BARRIER DEFECT [None]
  - ATAXIA [None]
  - OTOTOXICITY [None]
  - DYSAESTHESIA [None]
  - SOMNOLENCE [None]
  - MENINGEAL DISORDER [None]
  - ARRHYTHMIA [None]
  - NYSTAGMUS [None]
  - MENINGITIS ASEPTIC [None]
  - URINARY TRACT INFECTION [None]
  - PLEOCYTOSIS [None]
  - PHOTOPHOBIA [None]
  - MIGRAINE [None]
